FAERS Safety Report 23507724 (Version 1)
Quarter: 2024Q1

REPORT INFORMATION
  Report Type: Spontaneous
  Country: CN (occurrence: CN)
  Receive Date: 20240209
  Receipt Date: 20240209
  Transmission Date: 20240409
  Serious: Yes (Other)
  Sender: FDA-Public Use
  Company Number: CN-PFIZER INC-PV202400018652

PATIENT
  Age: 9 Year
  Sex: Female
  Weight: 21.4 kg

DRUGS (2)
  1. SOLU-MEDROL [Suspect]
     Active Substance: METHYLPREDNISOLONE SODIUM SUCCINATE
     Indication: Systemic lupus erythematosus
     Dosage: 24 MG, 2X/DAY
     Route: 041
     Dates: start: 20231130, end: 20231218
  2. DEXTROSE\SODIUM CHLORIDE [Concomitant]
     Active Substance: DEXTROSE\SODIUM CHLORIDE
     Dosage: 100 ML, 2X/DAY (4:1))
     Route: 041
     Dates: start: 20231130, end: 20231218

REACTIONS (1)
  - Hypokalaemia [Recovering/Resolving]

NARRATIVE: CASE EVENT DATE: 20231215
